FAERS Safety Report 4870454-5 (Version None)
Quarter: 2006Q1

REPORT INFORMATION
  Report Type: 
  Country: None (occurrence: None)
  Receive Date: 20060103
  Receipt Date: 20050901
  Transmission Date: 20060701
  Serious: Yes (Other)
  Sender: FDA-Public Use
  Company Number: US-BRISTOL-MYERS SQUIBB COMPANY-13097092

PATIENT
  Sex: Male
  Weight: 73 kg

DRUGS (2)
  1. DESYREL [Suspect]
     Indication: INSOMNIA
     Route: 048
  2. DESYREL [Suspect]
     Indication: DEPRESSION
     Route: 048

REACTIONS (1)
  - PRIAPISM [None]
